FAERS Safety Report 16763723 (Version 1)
Quarter: 2019Q3

REPORT INFORMATION
  Report Type: Spontaneous
  Country: DE (occurrence: DE)
  Receive Date: 20190902
  Receipt Date: 20190902
  Transmission Date: 20191005
  Serious: Yes (Other)
  Sender: FDA-Public Use
  Company Number: DE-PFIZER INC-2018483300

PATIENT
  Sex: Male

DRUGS (1)
  1. CORDAREX [Suspect]
     Active Substance: AMIODARONE
     Dosage: UNK
     Route: 048

REACTIONS (3)
  - Eye disorder [Unknown]
  - Visual impairment [Unknown]
  - Corneal deposits [Unknown]
